FAERS Safety Report 19069239 (Version 1)
Quarter: 2021Q1

REPORT INFORMATION
  Report Type: Report from Study
  Country: US (occurrence: US)
  Receive Date: 20210329
  Receipt Date: 20210329
  Transmission Date: 20210420
  Serious: Yes (Hospitalization, Other)
  Sender: FDA-Public Use
  Company Number: US-JNJFOC-20210225375

PATIENT
  Age: 45 Year
  Sex: Female
  Weight: 75 kg

DRUGS (6)
  1. VELETRI [Suspect]
     Active Substance: EPOPROSTENOL
     Indication: PULMONARY ARTERIAL HYPERTENSION
     Route: 042
  2. SILDENAFIL CITRATE. [Concomitant]
     Active Substance: SILDENAFIL CITRATE
  3. MACITENTAN [Concomitant]
     Active Substance: MACITENTAN
     Route: 065
  4. VELETRI [Suspect]
     Active Substance: EPOPROSTENOL
     Route: 042
  5. SELEXIPAG [Suspect]
     Active Substance: SELEXIPAG
     Indication: PULMONARY ARTERIAL HYPERTENSION
     Route: 048
  6. VELETRI [Suspect]
     Active Substance: EPOPROSTENOL
     Route: 042

REACTIONS (12)
  - Pain in jaw [Unknown]
  - Therapy change [Unknown]
  - Peripheral swelling [Unknown]
  - Back pain [Unknown]
  - Headache [Unknown]
  - Pain in extremity [Unknown]
  - Device dislocation [Unknown]
  - Product administration interrupted [Unknown]
  - Migraine [Unknown]
  - Cholecystectomy [Unknown]
  - Product taste abnormal [Unknown]
  - Vomiting [Unknown]

NARRATIVE: CASE EVENT DATE: 20210318
